FAERS Safety Report 9257998 (Version 1)
Quarter: 2013Q2

REPORT INFORMATION
  Report Type: Spontaneous
  Country: US (occurrence: None)
  Receive Date: 20130424
  Receipt Date: 20130424
  Transmission Date: 20140414
  Serious: Yes (Disabling)
  Sender: FDA-Public Use
  Company Number: None

PATIENT
  Age: 72 Year
  Sex: Female
  Weight: 70.76 kg

DRUGS (2)
  1. PROLIA [Suspect]
     Indication: OSTEOPOROSIS
     Dosage: HAD 3 INJECTIONS 60 MG EVERY 6 MONTHS INJECTIONS
     Dates: start: 20110727, end: 20120129
  2. PROLIA [Concomitant]

REACTIONS (3)
  - Jaw disorder [None]
  - Tooth disorder [None]
  - Tooth extraction [None]
